APPROVED DRUG PRODUCT: CHLOROTHIAZIDE SODIUM
Active Ingredient: CHLOROTHIAZIDE SODIUM
Strength: EQ 500MG BASE/VIAL
Dosage Form/Route: INJECTABLE;INJECTION
Application: A202462 | Product #001 | TE Code: AP
Applicant: SAGENT PHARMACEUTICALS INC
Approved: May 29, 2015 | RLD: No | RS: Yes | Type: RX